FAERS Safety Report 8478336-7 (Version None)
Quarter: 2012Q2

REPORT INFORMATION
  Report Type: 
  Country: None (occurrence: None)
  Receive Date: 20120629
  Receipt Date: 20120625
  Transmission Date: 20120825
  Serious: Yes (Death, Other)
  Sender: FDA-Public Use
  Company Number: FR-PFIZER INC-2012152103

PATIENT
  Age: 36 Year
  Sex: Male
  Weight: 65 kg

DRUGS (3)
  1. CYCLOSPORINE [Concomitant]
     Dosage: 350 MG DAILY
  2. SOLU-MEDROL [Concomitant]
  3. ATGAM [Suspect]
     Dosage: 40 MG/KG, UNK
     Route: 042
     Dates: start: 20111122, end: 20111125

REACTIONS (2)
  - BACTERIAL SEPSIS [None]
  - DISEASE PROGRESSION [None]
